FAERS Safety Report 13810901 (Version 2)
Quarter: 2022Q3

REPORT INFORMATION
  Report Type: Spontaneous
  Country: US (occurrence: None)
  Receive Date: 20170728
  Receipt Date: 20220805
  Transmission Date: 20221027
  Serious: No
  Sender: FDA-Public Use
  Company Number: US-ROCHE-1231367

PATIENT
  Sex: Female

DRUGS (4)
  1. BONIVA [Suspect]
     Active Substance: IBANDRONATE SODIUM
     Indication: Product used for unknown indication
     Route: 065
  2. DETROL [Concomitant]
     Active Substance: TOLTERODINE TARTRATE
  3. DETROL [Concomitant]
     Active Substance: TOLTERODINE TARTRATE
  4. DETROL LA [Concomitant]
     Active Substance: TOLTERODINE TARTRATE

REACTIONS (6)
  - Oropharyngeal pain [Unknown]
  - Chest pain [Unknown]
  - Musculoskeletal chest pain [Unknown]
  - Drug eruption [Unknown]
  - Abdominal pain upper [Unknown]
  - Diarrhoea [Unknown]
